FAERS Safety Report 15327899 (Version 1)
Quarter: 2018Q3

REPORT INFORMATION
  Report Type: Spontaneous
  Country: US (occurrence: US)
  Receive Date: 20180828
  Receipt Date: 20180828
  Transmission Date: 20181010
  Serious: No
  Sender: FDA-Public Use
  Company Number: US-ROCHE-2089290

PATIENT
  Sex: Male

DRUGS (3)
  1. PEGASYS [Suspect]
     Active Substance: PEGINTERFERON ALFA-2A
     Indication: MYELOFIBROSIS
     Route: 058
  2. PEGASYS [Suspect]
     Active Substance: PEGINTERFERON ALFA-2A
     Indication: THROMBOCYTOPENIA
  3. VITAMIN A [Concomitant]
     Active Substance: VITAMIN A

REACTIONS (5)
  - Abdominal pain upper [Unknown]
  - Intentional product use issue [Unknown]
  - Off label use [Unknown]
  - Weight decreased [Unknown]
  - Diarrhoea [Unknown]
